FAERS Safety Report 4291932-6 (Version None)
Quarter: 2004Q1

REPORT INFORMATION
  Report Type: 
  Country: None (occurrence: None)
  Receive Date: 20040126
  Receipt Date: 20030909
  Transmission Date: 20041129
  Serious: No
  Sender: FDA-Public Use
  Company Number: USA030946763

PATIENT
  Sex: Male

DRUGS (3)
  1. FORTEO [Suspect]
     Dates: start: 20030101
  2. IMURAN [Concomitant]
  3. PROGRAF [Concomitant]

REACTIONS (1)
  - INJECTION SITE ERYTHEMA [None]
